FAERS Safety Report 10780314 (Version 1)
Quarter: 2015Q1

REPORT INFORMATION
  Report Type: Spontaneous
  Country: US (occurrence: US)
  Receive Date: 20150210
  Receipt Date: 20150210
  Transmission Date: 20150721
  Serious: No
  Sender: FDA-Public Use
  Company Number: US-GLAXOSMITHKLINE-A1072718A

PATIENT

DRUGS (2)
  1. TYKERB [Suspect]
     Active Substance: LAPATINIB DITOSYLATE
     Indication: LUNG NEOPLASM MALIGNANT
  2. TYKERB [Suspect]
     Active Substance: LAPATINIB DITOSYLATE
     Indication: BREAST CANCER FEMALE
     Dosage: 1000 MG DAILY (4 250 MG TABLETS)DOSE REDUCED TO 3, 250 MG TABLETS DAILY (750 MG)
     Route: 065
     Dates: start: 20140502

REACTIONS (2)
  - Diarrhoea [Unknown]
  - Decreased appetite [Unknown]
